FAERS Safety Report 17069777 (Version 1)
Quarter: 2019Q4

REPORT INFORMATION
  Report Type: Spontaneous
  Country: IT (occurrence: IT)
  Receive Date: 20191125
  Receipt Date: 20191125
  Transmission Date: 20200122
  Serious: Yes (Hospitalization)
  Sender: FDA-Public Use
  Company Number: IT-TEVA-2019-IT-1140662

PATIENT
  Age: 79 Year
  Sex: Female

DRUGS (7)
  1. SPIOLTO RESPIMAT [Concomitant]
     Active Substance: OLODATEROL HYDROCHLORIDE\TIOTROPIUM BROMIDE MONOHYDRATE
  2. CLOPIDOGREL BESILATE [Suspect]
     Active Substance: CLOPIDOGREL BESILATE
     Indication: ISCHAEMIC HEART DISEASE PROPHYLAXIS
     Dosage: 75 MILLIGRAM
     Route: 048
     Dates: start: 20190101, end: 20190910
  3. NEO-LOTAN [Concomitant]
     Active Substance: LOSARTAN POTASSIUM
  4. TORVAST 80 MG COMPRESSE RIVESTITE CON FILM [Concomitant]
  5. ZYLORIC [Concomitant]
     Active Substance: ALLOPURINOL
  6. ACIDO ACETILSALICILICO TEVA ITALIA [Suspect]
     Active Substance: ASPIRIN
     Indication: ISCHAEMIC HEART DISEASE PROPHYLAXIS
     Route: 048
     Dates: start: 20190101, end: 20190910
  7. EUTIROX [Concomitant]
     Active Substance: LEVOTHYROXINE SODIUM

REACTIONS (1)
  - Metrorrhagia [Unknown]

NARRATIVE: CASE EVENT DATE: 20190910
